FAERS Safety Report 14690860 (Version 1)
Quarter: 2018Q1

REPORT INFORMATION
  Report Type: Spontaneous
  Country: BR (occurrence: BR)
  Receive Date: 20180328
  Receipt Date: 20180328
  Transmission Date: 20180509
  Serious: Yes (Other)
  Sender: FDA-Public Use
  Company Number: BR-SA-2018SA055476

PATIENT
  Sex: Male

DRUGS (2)
  1. BENACORT [Suspect]
     Active Substance: BUDESONIDE
     Route: 065
  2. LEFLUNOMIDE. [Suspect]
     Active Substance: LEFLUNOMIDE
     Route: 048

REACTIONS (3)
  - Cataract operation [Unknown]
  - Cataract [Recovering/Resolving]
  - Swelling [Recovering/Resolving]
